FAERS Safety Report 7251031-8 (Version None)
Quarter: 2011Q1

REPORT INFORMATION
  Report Type: 
  Country: None (occurrence: None)
  Receive Date: 20110128
  Receipt Date: 20110126
  Transmission Date: 20110831
  Serious: Yes (Hospitalization)
  Sender: FDA-Public Use
  Company Number: Z0005508A

PATIENT
  Age: 64 Year
  Sex: Female
  Weight: 62 kg

DRUGS (4)
  1. PAZOPANIB [Suspect]
     Indication: RENAL CELL CARCINOMA
     Dosage: 800MG PER DAY
     Route: 048
     Dates: start: 20100413, end: 20100819
  2. FENTANYL-100 [Suspect]
     Indication: PAIN
     Dosage: 75MCG TWO TIMES PER WEEK
     Route: 062
     Dates: start: 20100820, end: 20100901
  3. DEXAMETHASONE [Concomitant]
     Indication: METASTASES TO SPINE
     Dosage: 4MG FOUR TIMES PER DAY
     Route: 042
     Dates: start: 20100829, end: 20100829
  4. LIDODERM [Concomitant]
     Indication: PAIN
     Dosage: 5PCT TWICE PER DAY
     Route: 062
     Dates: start: 20100827, end: 20100901

REACTIONS (1)
  - CONSTIPATION [None]
